FAERS Safety Report 5521553-6 (Version None)
Quarter: 2007Q4

REPORT INFORMATION
  Report Type: 
  Country: None (occurrence: None)
  Receive Date: 20071115
  Receipt Date: 20071102
  Transmission Date: 20080405
  Serious: Yes (Hospitalization)
  Sender: FDA-Public Use
  Company Number: A-JP2007-18384

PATIENT
  Sex: Female

DRUGS (2)
  1. TRACLEER [Suspect]
     Indication: PULMONARY HYPERTENSION
     Dosage: ORAL
     Route: 048
     Dates: start: 20050101
  2. SILDENAFIL CITRATE [Suspect]
     Dates: start: 20060101

REACTIONS (2)
  - DEAFNESS [None]
  - DIZZINESS [None]
